FAERS Safety Report 19579193 (Version 1)
Quarter: 2021Q3

REPORT INFORMATION
  Report Type: Spontaneous
  Country: US (occurrence: US)
  Receive Date: 20210719
  Receipt Date: 20210719
  Transmission Date: 20211014
  Serious: Yes (Other)
  Sender: FDA-Public Use
  Company Number: US-GILEAD-2021-0541009

PATIENT
  Sex: Male

DRUGS (2)
  1. ENTECAVIR. [Concomitant]
     Active Substance: ENTECAVIR
  2. VEMLIDY [Suspect]
     Active Substance: TENOFOVIR ALAFENAMIDE FUMARATE
     Indication: PRODUCT USED FOR UNKNOWN INDICATION
     Route: 065

REACTIONS (3)
  - Chest pain [Unknown]
  - Vascular graft [Unknown]
  - Cardiac disorder [Unknown]
